FAERS Safety Report 10559551 (Version 1)
Quarter: 2014Q4

REPORT INFORMATION
  Report Type: Spontaneous
  Country: DE (occurrence: DE)
  Receive Date: 20141103
  Receipt Date: 20141103
  Transmission Date: 20150529
  Serious: Yes (Death, Other)
  Sender: FDA-Public Use
  Company Number: PHHY2014DE142143

PATIENT
  Sex: Female

DRUGS (3)
  1. AOLEPT [Suspect]
     Active Substance: PERICIAZINE
     Indication: PRODUCT USED FOR UNKNOWN INDICATION
     Route: 065
  2. TEGRETOL [Suspect]
     Active Substance: CARBAMAZEPINE
     Indication: PRODUCT USED FOR UNKNOWN INDICATION
     Route: 065
  3. ZENTROPIL [Suspect]
     Active Substance: PHENYTOIN
     Route: 065

REACTIONS (24)
  - Pleurisy [Unknown]
  - Feeling abnormal [Unknown]
  - Paralysis [Unknown]
  - Aggression [Unknown]
  - Hallucination, visual [Unknown]
  - Seizure [Unknown]
  - Dissociative identity disorder [Unknown]
  - Enuresis [Unknown]
  - Abnormal behaviour [Unknown]
  - Gait disturbance [Unknown]
  - Pyrexia [Unknown]
  - Hallucination, auditory [Unknown]
  - Dysphagia [Unknown]
  - Pain in extremity [Unknown]
  - Obsessive-compulsive disorder [Unknown]
  - Apathy [Unknown]
  - Agitation [Unknown]
  - Fatigue [Fatal]
  - Schizophrenia [Unknown]
  - Movement disorder [Unknown]
  - Epilepsy [Unknown]
  - Musculoskeletal stiffness [Unknown]
  - Waxy flexibility [Unknown]
  - Dyspnoea [Unknown]

NARRATIVE: CASE EVENT DATE: 1973
